FAERS Safety Report 6260431-4 (Version None)
Quarter: 2009Q3

REPORT INFORMATION
  Report Type: 
  Country: None (occurrence: None)
  Receive Date: 20090706
  Receipt Date: 20090623
  Transmission Date: 20100115
  Serious: Yes (Other)
  Sender: FDA-Public Use
  Company Number: 1000007161

PATIENT
  Age: 24 Year
  Sex: Female

DRUGS (4)
  1. ESCITALOPRAM [Suspect]
     Dosage: ORAL
     Route: 048
     Dates: start: 20090622, end: 20090622
  2. DOXEPIN HCL [Suspect]
     Dosage: ORAL
     Route: 048
     Dates: start: 20090622, end: 20090622
  3. SEROQUEL [Suspect]
     Dosage: ORAL
     Route: 048
     Dates: start: 20090622, end: 20090622
  4. TAVOR [Suspect]
     Dosage: ORAL
     Route: 048
     Dates: start: 20090622, end: 20090622

REACTIONS (4)
  - INTENTIONAL OVERDOSE [None]
  - SOPOR [None]
  - SUICIDE ATTEMPT [None]
  - TACHYCARDIA [None]
